FAERS Safety Report 17860235 (Version 1)
Quarter: 2020Q2

REPORT INFORMATION
  Report Type: Spontaneous
  Country: US (occurrence: US)
  Receive Date: 20200604
  Receipt Date: 20200604
  Transmission Date: 20200714
  Serious: Yes (Hospitalization)
  Sender: FDA-Public Use
  Company Number: US-PFIZER INC-2020218232

PATIENT
  Age: 71 Year
  Sex: Female

DRUGS (1)
  1. TRANEXAMIC ACID. [Suspect]
     Active Substance: TRANEXAMIC ACID
     Dosage: 300 MG, SINGLE
     Route: 037

REACTIONS (3)
  - Wrong product administered [Unknown]
  - Status epilepticus [Recovered/Resolved with Sequelae]
  - Spinal disorder [Recovered/Resolved with Sequelae]
